FAERS Safety Report 4338104-4 (Version None)
Quarter: 2004Q2

REPORT INFORMATION
  Report Type: 
  Country: None (occurrence: None)
  Receive Date: 20040413
  Receipt Date: 20040413
  Transmission Date: 20050107
  Serious: Yes (Life-Threatening, Hospitalization)
  Sender: FDA-Public Use
  Company Number: None

PATIENT
  Sex: Female
  Weight: 54.4316 kg

DRUGS (3)
  1. PAXIL [Suspect]
     Indication: ANXIETY
     Dosage: 10 TO 25 MG DAY ORAL
     Route: 048
     Dates: start: 19960101, end: 20040325
  2. PAXIL [Suspect]
     Indication: DEPRESSION
     Dosage: 10 TO 25 MG DAY ORAL
     Route: 048
     Dates: start: 19960101, end: 20040325
  3. PAXIL [Suspect]
     Indication: STRESS SYMPTOMS
     Dosage: 10 TO 25 MG DAY ORAL
     Route: 048
     Dates: start: 19960101, end: 20040325

REACTIONS (1)
  - DRUG WITHDRAWAL SYNDROME [None]
